FAERS Safety Report 16248700 (Version 3)
Quarter: 2019Q2

REPORT INFORMATION
  Report Type: Spontaneous
  Country: US (occurrence: US)
  Receive Date: 20190429
  Receipt Date: 20190612
  Transmission Date: 20190711
  Serious: Yes (Other)
  Sender: FDA-Public Use
  Company Number: US-JNJFOC-20190430160

PATIENT
  Sex: Female
  Weight: 62.14 kg

DRUGS (4)
  1. NEOSPORIN PAIN ITCH SCAR [Suspect]
     Active Substance: BACITRACIN ZINC\NEOMYCIN SULFATE\POLYMYXIN B SULFATE\PRAMOXINE HYDROCHLORIDE
     Indication: ERYTHEMA
     Dosage: ONCE A SQUEEZE, COVERED ARM
     Route: 061
     Dates: start: 20190415, end: 20190415
  2. ALEVE [Concomitant]
     Active Substance: NAPROXEN SODIUM
     Indication: OSTEOARTHRITIS
     Route: 065
  3. NEOSPORIN PAIN ITCH SCAR [Suspect]
     Active Substance: BACITRACIN ZINC\NEOMYCIN SULFATE\POLYMYXIN B SULFATE\PRAMOXINE HYDROCHLORIDE
     Indication: IRRITABILITY
     Dosage: ONCE A SQUEEZE, COVERED ARM
     Route: 061
     Dates: start: 20190415, end: 20190415
  4. HYDROCHLOROTHIAZIDE. [Concomitant]
     Active Substance: HYDROCHLOROTHIAZIDE
     Indication: HYPERTENSION
     Dosage: 4 YEARS AGO, 12.5 MGS, ONCE DAILY, 17-APR-2019
     Route: 065

REACTIONS (2)
  - Product use in unapproved indication [Unknown]
  - Cellulitis [Recovering/Resolving]
